FAERS Safety Report 6182847-7 (Version None)
Quarter: 2009Q2

REPORT INFORMATION
  Report Type: 
  Country: None (occurrence: None)
  Receive Date: 20090507
  Receipt Date: 20090504
  Transmission Date: 20091009
  Serious: Yes (Hospitalization)
  Sender: FDA-Public Use
  Company Number: DE-BAYER-200916809GPV

PATIENT
  Age: 38 Year
  Sex: Female

DRUGS (4)
  1. BETAFERON [Suspect]
     Indication: MULTIPLE SCLEROSIS
     Route: 058
  2. OMEPRAZOLE [Concomitant]
     Indication: DRUG USE FOR UNKNOWN INDICATION
  3. PANTOZOL [Concomitant]
     Indication: DRUG USE FOR UNKNOWN INDICATION
  4. HYDROCORTISONE [Concomitant]
     Indication: MULTIPLE SCLEROSIS RELAPSE
     Route: 048

REACTIONS (1)
  - STEVENS-JOHNSON SYNDROME [None]
